FAERS Safety Report 5919269-7 (Version None)
Quarter: 2008Q4

REPORT INFORMATION
  Report Type: 
  Country: None (occurrence: None)
  Receive Date: 20081015
  Receipt Date: 20081003
  Transmission Date: 20090506
  Serious: Yes (Hospitalization)
  Sender: FDA-Public Use
  Company Number: PHEH2008US08877

PATIENT
  Sex: Female

DRUGS (1)
  1. LAMPRENE [Suspect]
     Dosage: UNK, UNK

REACTIONS (3)
  - ACUTE RESPIRATORY DISTRESS SYNDROME [None]
  - GASTRIC OPERATION [None]
  - GASTRIC PERFORATION [None]
